FAERS Safety Report 7207218-3 (Version None)
Quarter: 2010Q4

REPORT INFORMATION
  Report Type: 
  Country: None (occurrence: None)
  Receive Date: 20101221
  Receipt Date: 20101210
  Transmission Date: 20110411
  Serious: Yes (Hospitalization, Other)
  Sender: FDA-Public Use
  Company Number: 2010US004356

PATIENT
  Age: 40 Year
  Sex: Male
  Weight: 59 kg

DRUGS (7)
  1. PROGRAF [Suspect]
     Indication: RENAL TRANSPLANT
     Dosage: 0.5 MG BID AND 2 MG BID, ORAL
     Route: 048
     Dates: start: 20060924
  2. MYFORTIC [Concomitant]
  3. CALCIUM (COLECALCIFEROL) TABLET [Concomitant]
  4. PERCOCET (OXYCODONE HYDROCHLORIDE, OXYCODONE TEREPHTHALATE, PARACETAMO [Concomitant]
  5. CIPROFLOXACIN [Concomitant]
  6. ZYVOX [Concomitant]
  7. PROMETHAZINE [Concomitant]

REACTIONS (5)
  - ANEURYSM [None]
  - HAEMATOMA [None]
  - HYPOAESTHESIA [None]
  - MEDICAL DEVICE COMPLICATION [None]
  - PROCEDURAL SITE REACTION [None]
